FAERS Safety Report 23464039 (Version 1)
Quarter: 2024Q1

REPORT INFORMATION
  Report Type: Report from Study
  Country: ES (occurrence: ES)
  Receive Date: 20240201
  Receipt Date: 20240201
  Transmission Date: 20240410
  Serious: Yes (Death, Other)
  Sender: FDA-Public Use
  Company Number: ES-JNJFOC-20240175175

PATIENT

DRUGS (1)
  1. IMBRUVICA [Suspect]
     Active Substance: IBRUTINIB
     Indication: Chronic lymphocytic leukaemia
     Route: 048
     Dates: start: 201701, end: 202312

REACTIONS (10)
  - Death [Fatal]
  - Gastrointestinal haemorrhage [Fatal]
  - Hypertension [Fatal]
  - Gastrointestinal disorder [Unknown]
  - Chronic lymphocytic leukaemia [Fatal]
  - Hyperuricaemia [Unknown]
  - Arthralgia [Unknown]
  - Haemorrhagic diathesis [Fatal]
  - Richter^s syndrome [Fatal]
  - Petechiae [Unknown]
